FAERS Safety Report 23747575 (Version 2)
Quarter: 2024Q2

REPORT INFORMATION
  Report Type: Spontaneous
  Country: US (occurrence: US)
  Receive Date: 20240416
  Receipt Date: 20240419
  Transmission Date: 20240716
  Serious: Yes (Other)
  Sender: FDA-Public Use
  Company Number: US-002147023-NVSC2024US077805

PATIENT
  Age: 25 Year
  Sex: Female

DRUGS (1)
  1. KESIMPTA [Suspect]
     Active Substance: OFATUMUMAB
     Indication: Relapsing-remitting multiple sclerosis
     Dosage: UNK
     Route: 065
     Dates: start: 202302

REACTIONS (7)
  - Multiple sclerosis relapse [Unknown]
  - Band sensation [Unknown]
  - Abdominal pain lower [Unknown]
  - Abdominal pain [Unknown]
  - Contusion [Unknown]
  - Haemorrhage [Unknown]
  - Injection site swelling [Recovered/Resolved]
